FAERS Safety Report 11116549 (Version 2)
Quarter: 2015Q2

REPORT INFORMATION
  Report Type: Spontaneous
  Country: US (occurrence: US)
  Receive Date: 20150515
  Receipt Date: 20150619
  Transmission Date: 20150821
  Serious: Yes (Death, Hospitalization, Other)
  Sender: FDA-Public Use
  Company Number: US-PFIZER INC-2015165938

PATIENT
  Age: 65 Year
  Sex: Male
  Weight: 180 kg

DRUGS (1)
  1. ARGATROBAN. [Suspect]
     Active Substance: ARGATROBAN
     Dosage: UNK
     Route: 042
     Dates: start: 20150313, end: 20150320

REACTIONS (3)
  - International normalised ratio increased [Recovered/Resolved]
  - Heparin-induced thrombocytopenia [Unknown]
  - Sepsis [Fatal]

NARRATIVE: CASE EVENT DATE: 201503
